FAERS Safety Report 5300029-5 (Version None)
Quarter: 2007Q2

REPORT INFORMATION
  Report Type: 
  Country: None (occurrence: None)
  Receive Date: 20070417
  Receipt Date: 20070405
  Transmission Date: 20071010
  Serious: Yes (Other)
  Sender: FDA-Public Use
  Company Number: US-PFIZER INC-2006125850

PATIENT
  Sex: Female
  Weight: 85.7 kg

DRUGS (2)
  1. BEXTRA [Suspect]
     Indication: ARTHRITIS
     Dates: start: 20030101, end: 20040101
  2. BEXTRA [Suspect]
     Indication: MYALGIA

REACTIONS (5)
  - BRADYPHRENIA [None]
  - CARDIOVASCULAR DISORDER [None]
  - CEREBROVASCULAR ACCIDENT [None]
  - DEPRESSION [None]
  - VISION BLURRED [None]
